FAERS Safety Report 8957480 (Version 1)
Quarter: 2012Q4

REPORT INFORMATION
  Report Type: 
  Country: CA (occurrence: CA)
  Receive Date: 20121211
  Receipt Date: 20121211
  Transmission Date: 20130627
  Serious: Yes (Hospitalization, Other)
  Sender: FDA-Public Use
  Company Number: PHHY2012CA098478

PATIENT
  Age: 71 Year
  Sex: Female

DRUGS (3)
  1. AFINITOR [Suspect]
     Indication: VIPOMA
     Dosage: 10 mg/day
     Route: 048
     Dates: start: 20121003, end: 20121112
  2. SANDOSTATIN [Suspect]
     Indication: VIPOMA
     Dosage: 30 mg once month
     Route: 030
     Dates: start: 20111201, end: 20120318
  3. SANDOSTATIN [Suspect]
     Dosage: TID
     Route: 058
     Dates: start: 20121112, end: 20121204

REACTIONS (4)
  - Asthenia [Unknown]
  - Hypotension [Unknown]
  - Balance disorder [Unknown]
  - Oropharyngeal pain [Unknown]
